FAERS Safety Report 8400946-3 (Version None)
Quarter: 2012Q2

REPORT INFORMATION
  Report Type: 
  Country: None (occurrence: None)
  Receive Date: 20120601
  Receipt Date: 20120522
  Transmission Date: 20120825
  Serious: Yes (Hospitalization)
  Sender: FDA-Public Use
  Company Number: US-BIOGENIDEC-2012BI011696

PATIENT
  Age: 33 Year
  Sex: Female

DRUGS (11)
  1. TYSABRI [Suspect]
     Indication: CROHN'S DISEASE
     Route: 042
     Dates: start: 20080604
  2. ACYCLOVIR [Concomitant]
  3. XANAX [Concomitant]
  4. DICYCLOMINE [Concomitant]
  5. ZOFRAN [Concomitant]
  6. CELEXA [Concomitant]
  7. DIFLUCAN [Concomitant]
  8. EXCEDRIN (MIGRAINE) [Concomitant]
  9. COLESTID [Concomitant]
  10. AYGESTIN [Concomitant]
  11. IBUPROFEN (ADVIL) [Concomitant]

REACTIONS (1)
  - PNEUMOTHORAX [None]
